FAERS Safety Report 5292025-1 (Version None)
Quarter: 2007Q2

REPORT INFORMATION
  Report Type: 
  Country: None (occurrence: None)
  Receive Date: 20070410
  Receipt Date: 20070405
  Transmission Date: 20071010
  Serious: Yes (Life-Threatening, Hospitalization)
  Sender: FDA-Public Use
  Company Number: PL-JNJFOC-20060802938

PATIENT
  Sex: Female
  Weight: 52 kg

DRUGS (7)
  1. YONDELIS [Suspect]
     Indication: OVARIAN CANCER
     Route: 042
  2. CAELYX [Suspect]
     Indication: OVARIAN CANCER
     Route: 042
     Dates: start: 20060728, end: 20060825
  3. ZOFRAN [Concomitant]
     Route: 042
  4. ZOFRAN [Concomitant]
     Route: 042
  5. ZOFRAN [Concomitant]
     Indication: PROPHYLAXIS OF NAUSEA AND VOMITING
     Route: 042
  6. NEUPOGEN [Concomitant]
     Route: 058
  7. NEUPOGEN [Concomitant]
     Route: 058

REACTIONS (3)
  - HYDROTHORAX [None]
  - NEUTROPENIA [None]
  - PANCYTOPENIA [None]
